FAERS Safety Report 22607130 (Version 1)
Quarter: 2023Q2

REPORT INFORMATION
  Report Type: Spontaneous
  Country: AR (occurrence: AR)
  Receive Date: 20230615
  Receipt Date: 20230615
  Transmission Date: 20230722
  Serious: Yes (Other)
  Sender: FDA-Public Use
  Company Number: AR-BoehringerIngelheim-2023-BI-243275

PATIENT
  Age: 88 Year
  Sex: Male

DRUGS (1)
  1. ALTEPLASE [Suspect]
     Active Substance: ALTEPLASE
     Indication: Product used for unknown indication
     Route: 042

REACTIONS (3)
  - Cerebral haematoma [Unknown]
  - NIH stroke scale score increased [Recovered/Resolved]
  - Sensory disturbance [Unknown]
